FAERS Safety Report 12863826 (Version 5)
Quarter: 2016Q4

REPORT INFORMATION
  Report Type: Report from Study
  Country: US (occurrence: US)
  Receive Date: 20161019
  Receipt Date: 20161216
  Transmission Date: 20170207
  Serious: Yes (Death, Hospitalization)
  Sender: FDA-Public Use
  Company Number: US-ACTELION-A-US2016-143996

PATIENT
  Age: 75 Year
  Sex: Female

DRUGS (3)
  1. TRACLEER [Suspect]
     Active Substance: BOSENTAN
     Indication: PULMONARY ARTERIAL HYPERTENSION
     Dosage: 125 MG, BID
     Route: 048
     Dates: start: 20090709, end: 20161129
  2. TYVASO [Concomitant]
     Active Substance: TREPROSTINIL
  3. AMLODIPINE [Concomitant]
     Active Substance: AMLODIPINE BESYLATE

REACTIONS (9)
  - Rectal perforation [Unknown]
  - Functional gastrointestinal disorder [Unknown]
  - Large intestine perforation [Unknown]
  - Renal failure [Fatal]
  - Staphylococcal infection [Unknown]
  - Rectal prolapse [Unknown]
  - Rectocele repair [Unknown]
  - Clostridium difficile infection [Unknown]
  - Large intestinal obstruction [Unknown]
